FAERS Safety Report 8777335 (Version 2)
Quarter: 2012Q4

REPORT INFORMATION
  Report Type: 
  Country: BR (occurrence: BR)
  Receive Date: 20120911
  Receipt Date: 20120920
  Transmission Date: 20130627
  Serious: Yes (Other)
  Sender: FDA-Public Use
  Company Number: BR-PFIZER INC-2012220124

PATIENT
  Age: 48 Year
  Sex: Female

DRUGS (4)
  1. LOPID [Suspect]
     Indication: BLOOD TRIGLYCERIDES INCREASED
     Dosage: 600, UNK
  2. LOPID [Suspect]
     Dosage: 900, UNK
  3. LOPID [Suspect]
     Dosage: 1200mg, UNK
  4. GEMFIBROZIL [Suspect]
     Dosage: UNK
     Dates: start: 2009

REACTIONS (4)
  - Hepatic fibrosis [Unknown]
  - Hepatomegaly [Unknown]
  - Hepatic steatosis [Unknown]
  - Splenomegaly [Unknown]
